FAERS Safety Report 6170456-5 (Version None)
Quarter: 2009Q2

REPORT INFORMATION
  Report Type: 
  Country: None (occurrence: None)
  Receive Date: 20090428
  Receipt Date: 20090205
  Transmission Date: 20091009
  Serious: No
  Sender: FDA-Public Use
  Company Number: US-BAYER-200910494BCC

PATIENT
  Age: 77 Year
  Sex: Female
  Weight: 64 kg

DRUGS (2)
  1. ALEVE (CAPLET) [Suspect]
     Indication: ARTHRALGIA
     Dosage: TOTAL DAILY DOSE: 440 MG  UNIT DOSE: 220 MG
     Dates: start: 19990101, end: 20090204
  2. TYLENOL [Concomitant]
     Indication: ARTHRALGIA
     Dates: start: 20090205

REACTIONS (1)
  - PRURITUS GENERALISED [None]
